FAERS Safety Report 11065747 (Version 1)
Quarter: 2015Q2

REPORT INFORMATION
  Report Type: Report from Study
  Country: ES (occurrence: ES)
  Receive Date: 20150425
  Receipt Date: 20150425
  Transmission Date: 20150821
  Serious: Yes (Hospitalization, Other)
  Sender: FDA-Public Use
  Company Number: ES-BRISTOL-MYERS SQUIBB COMPANY-15568843

PATIENT
  Age: 52 Year
  Sex: Male

DRUGS (9)
  1. IPILIMUMAB [Suspect]
     Active Substance: IPILIMUMAB
     Indication: PROSTATE CANCER
     Dosage: 151ML
     Route: 042
     Dates: start: 20101210
  2. PARACETAMOL [Concomitant]
     Active Substance: ACETAMINOPHEN
     Indication: ADVERSE EVENT
     Dosage: 02DEC10-30DEC10  10JAN11-19JAN11:6G  20JAN11-02FEB11:6G  03-FEB-11-CONT: 1 G
     Route: 048
     Dates: start: 20101202, end: 20101230
  3. IBUPROFEN. [Concomitant]
     Active Substance: IBUPROFEN
     Indication: ADVERSE EVENT
     Dosage: 22DEC-20JAN11:1800MG  20JAN11-02FEB11: 600 MG  03FEB2011-CONT:2400MG
     Route: 048
     Dates: start: 20101202
  4. LOPERAMIDE [Concomitant]
     Active Substance: LOPERAMIDE
     Indication: ADVERSE EVENT
     Dosage: 13DEC10-17DEC10  20JAN11-CONT
     Route: 048
     Dates: start: 20101213
  5. TRIPTORELIN [Concomitant]
     Active Substance: TRIPTORELIN
     Indication: PRODUCT USED FOR UNKNOWN INDICATION
     Dosage: .125 MG, QD
     Route: 030
     Dates: start: 20080415
  6. OXYCONTIN [Concomitant]
     Active Substance: OXYCODONE HYDROCHLORIDE
     Indication: ADVERSE EVENT
     Dosage: UNK UNK, PRN
     Route: 048
     Dates: start: 20110120
  7. ZOLEDRONIC ACID [Concomitant]
     Active Substance: ZOLEDRONIC ACID
     Indication: PRODUCT USED FOR UNKNOWN INDICATION
     Dosage: .14 MG, QD
     Route: 042
     Dates: start: 20091005
  8. OMEPRAZOL E [Concomitant]
     Active Substance: OMEPRAZOLE
     Indication: PRODUCT USED FOR UNKNOWN INDICATION
     Dosage: 20 MG, QD
     Route: 048
     Dates: start: 20101202
  9. LORAZEPAM. [Concomitant]
     Active Substance: LORAZEPAM
     Indication: ADVERSE EVENT
     Dosage: 1 MG, QD
     Route: 048
     Dates: start: 20110127

REACTIONS (2)
  - Ileus paralytic [Recovered/Resolved]
  - Pyrexia [Recovered/Resolved]

NARRATIVE: CASE EVENT DATE: 20110203
